FAERS Safety Report 9514794 (Version 2)
Quarter: 2014Q1

REPORT INFORMATION
  Report Type: Spontaneous
  Country: IT (occurrence: IT)
  Receive Date: 20130911
  Receipt Date: 20140122
  Transmission Date: 20141002
  Serious: Yes (Other)
  Sender: FDA-Public Use
  Company Number: IT-ACCORD-019313

PATIENT
  Age: 68 Year
  Sex: Male
  Weight: 60 kg

DRUGS (6)
  1. GEMCITABINE/GEMCITABINE HYDROCHLORIDE [Suspect]
     Indication: NON-SMALL CELL LUNG CANCER
     Route: 042
     Dates: start: 20121022, end: 20130130
  2. CISPLATIN [Suspect]
     Indication: NON-SMALL CELL LUNG CANCER
     Route: 042
     Dates: start: 20121022, end: 20130130
  3. SOLDESAM [Concomitant]
     Route: 042
     Dates: start: 20121022, end: 20130130
  4. FUROSEMIDE [Concomitant]
     Route: 042
     Dates: start: 20121022, end: 20130130
  5. ONDANSETRON [Concomitant]
     Route: 042
     Dates: start: 20121022, end: 20130130
  6. RANIDIL [Concomitant]
     Route: 042
     Dates: start: 20121022, end: 20130130

REACTIONS (6)
  - Vomiting [Unknown]
  - Nail discolouration [Unknown]
  - Retching [Unknown]
  - Asthenia [Unknown]
  - Nausea [Unknown]
  - Formication [Unknown]
